FAERS Safety Report 19239533 (Version 3)
Quarter: 2021Q3

REPORT INFORMATION
  Report Type: Report from Study
  Country: CA (occurrence: CA)
  Receive Date: 20210510
  Receipt Date: 20210716
  Transmission Date: 20211014
  Serious: Yes (Other)
  Sender: FDA-Public Use
  Company Number: CA-TAKEDA-2019TUS013679

PATIENT
  Age: 69 Year
  Sex: Female

DRUGS (12)
  1. VEDOLIZUMAB [Suspect]
     Active Substance: VEDOLIZUMAB
     Indication: CROHN^S DISEASE
     Dosage: 300 MILLIGRAM
     Route: 042
     Dates: start: 20190219
  2. VEDOLIZUMAB [Suspect]
     Active Substance: VEDOLIZUMAB
     Dosage: 300 MILLIGRAM
     Route: 042
  3. VEDOLIZUMAB [Suspect]
     Active Substance: VEDOLIZUMAB
     Dosage: 300 MILLIGRAM
     Route: 042
     Dates: end: 20210316
  4. TEMAZEPAM. [Concomitant]
     Active Substance: TEMAZEPAM
     Dosage: 30 MILLIGRAM
  5. VITAMIN D3 [Concomitant]
     Active Substance: CHOLECALCIFEROL
     Dosage: UNK
  6. RISEDRONATE [Concomitant]
     Active Substance: RISEDRONATE SODIUM
     Dosage: UNK
  7. EMTEC [Concomitant]
     Active Substance: ACETAMINOPHEN\CODEINE PHOSPHATE
     Dosage: 30 MILLIGRAM
  8. CALCIUM [Concomitant]
     Active Substance: CALCIUM
     Dosage: UNK
  9. VEDOLIZUMAB [Suspect]
     Active Substance: VEDOLIZUMAB
     Dosage: 300 MILLIGRAM
     Route: 042
  10. PREDNISONE. [Concomitant]
     Active Substance: PREDNISONE
     Dosage: 15 MILLIGRAM
  11. VEDOLIZUMAB [Suspect]
     Active Substance: VEDOLIZUMAB
     Dosage: 300 MILLIGRAM
     Route: 042
  12. VEDOLIZUMAB [Suspect]
     Active Substance: VEDOLIZUMAB
     Dosage: 300 MILLIGRAM
     Route: 042

REACTIONS (1)
  - Crohn^s disease [Not Recovered/Not Resolved]

NARRATIVE: CASE EVENT DATE: 2019
